FAERS Safety Report 16643473 (Version 1)
Quarter: 2019Q3

REPORT INFORMATION
  Report Type: Spontaneous
  Country: DE (occurrence: DE)
  Receive Date: 20190729
  Receipt Date: 20190729
  Transmission Date: 20191004
  Serious: Yes (Hospitalization)
  Sender: FDA-Public Use
  Company Number: DE-JNJFOC-20190730552

PATIENT
  Age: 62 Year
  Sex: Male
  Weight: 100 kg

DRUGS (7)
  1. HYDROCHLOROTHIAZIDE. [Concomitant]
     Active Substance: HYDROCHLOROTHIAZIDE
     Dosage: 12.5 MG, OM
     Route: 048
  2. VALSARTAN. [Concomitant]
     Active Substance: VALSARTAN
     Dosage: 80 MG, OM
     Route: 048
  3. BISOHEXAL [Concomitant]
     Active Substance: BISOPROLOL FUMARATE
     Dosage: 2.5 MG, BID, DRUG WITHDRAWN
     Route: 048
  4. TORASEMID [Concomitant]
     Active Substance: TORSEMIDE
     Dosage: 5 MG, BID, DRUG WITHDRAWN
     Route: 048
  5. PANTOPRAZOLE [Concomitant]
     Active Substance: PANTOPRAZOLE
     Dosage: 20 MG, OM, DOSE INCREASED
     Route: 048
  6. ETORICOXIB. [Concomitant]
     Active Substance: ETORICOXIB
     Dosage: 90 MG, OM, DRUG WITHDRAWN
     Route: 048
  7. RIVAROXABAN [Suspect]
     Active Substance: RIVAROXABAN
     Indication: PRODUCT USED FOR UNKNOWN INDICATION
     Dosage: 10 MG, OM
     Route: 048

REACTIONS (3)
  - Dyspnoea [Unknown]
  - Oedema peripheral [Unknown]
  - General physical health deterioration [Unknown]
